FAERS Safety Report 7978203-9 (Version None)
Quarter: 2011Q4

REPORT INFORMATION
  Report Type: 
  Country: None (occurrence: None)
  Receive Date: 20111129
  Receipt Date: 20110712
  Transmission Date: 20120403
  Serious: No
  Sender: FDA-Public Use
  Company Number: PHHY2011US63467

PATIENT
  Age: 24 Year
  Sex: Male

DRUGS (7)
  1. KLONODINE [Concomitant]
  2. DEPAKOTE SPRINKLES (VALPROATE SEMISODIUM) [Concomitant]
  3. LAMICTAL [Concomitant]
  4. AFINITOR [Suspect]
     Indication: ASTROCYTOMA
     Dosage: 5 MG, DAILY, ORAL
     Route: 048
     Dates: start: 20110623
  5. AFINITOR [Suspect]
     Indication: TUBEROUS SCLEROSIS
     Dosage: 5 MG, DAILY, ORAL
     Route: 048
     Dates: start: 20110623
  6. TOPAMAX [Concomitant]
  7. VITAMIN TAB [Concomitant]

REACTIONS (2)
  - LIP DISORDER [None]
  - ABNORMAL BEHAVIOUR [None]
